FAERS Safety Report 20487808 (Version 1)
Quarter: 2022Q1

REPORT INFORMATION
  Report Type: Spontaneous
  Country: JP (occurrence: JP)
  Receive Date: 20220218
  Receipt Date: 20220218
  Transmission Date: 20220423
  Serious: Yes (Life-Threatening, Other)
  Sender: FDA-Public Use
  Company Number: JP-MSD-M2022-05091

PATIENT
  Age: 61 Year
  Sex: Male

DRUGS (1)
  1. KEYTRUDA [Suspect]
     Active Substance: PEMBROLIZUMAB
     Indication: Bladder transitional cell carcinoma
     Dosage: 200 MILLIGRAM, Q3W
     Route: 041
     Dates: start: 20220201

REACTIONS (4)
  - Pulmonary oedema [Unknown]
  - Tumour lysis syndrome [Unknown]
  - Dyspnoea [Not Recovered/Not Resolved]
  - Lung infiltration [Unknown]

NARRATIVE: CASE EVENT DATE: 20220201
